FAERS Safety Report 17514753 (Version 1)
Quarter: 2020Q1

REPORT INFORMATION
  Report Type: Spontaneous
  Country: US (occurrence: US)
  Receive Date: 20200226
  Receipt Date: 20200226
  Transmission Date: 20200409
  Serious: Yes (Hospitalization)
  Sender: FDA-Public Use
  Company Number: None

PATIENT
  Age: 68 Year
  Sex: Male
  Weight: 71 kg

DRUGS (1)
  1. PITAVASTATIN (PITAVASTATIN 4MG TAB) [Suspect]
     Active Substance: PITAVASTATIN CALCIUM
     Route: 048
     Dates: start: 20190627, end: 20191110

REACTIONS (7)
  - Polyuria [None]
  - Flank pain [None]
  - Back pain [None]
  - Syncope [None]
  - Pruritus [None]
  - Chest pain [None]
  - Myalgia [None]

NARRATIVE: CASE EVENT DATE: 20191103
